FAERS Safety Report 9774934 (Version 1)
Quarter: 2013Q4

REPORT INFORMATION
  Report Type: Spontaneous
  Country: US (occurrence: US)
  Receive Date: 20131220
  Receipt Date: 20131220
  Transmission Date: 20140711
  Serious: No
  Sender: FDA-Public Use
  Company Number: US-GLAXOSMITHKLINE-A1019060A

PATIENT
  Age: 68 Year
  Sex: Male

DRUGS (5)
  1. AVODART [Suspect]
     Indication: BENIGN PROSTATIC HYPERPLASIA
     Dosage: .5MG PER DAY
     Route: 048
     Dates: start: 20130214
  2. VERAPAMIL ER [Concomitant]
  3. CIALIS [Concomitant]
  4. TRAMADOL [Concomitant]
  5. HALCION [Concomitant]

REACTIONS (5)
  - Hot flush [Not Recovered/Not Resolved]
  - Feeling hot [Unknown]
  - Erythema [Unknown]
  - Hyperhidrosis [Unknown]
  - Drug interaction [Unknown]
